FAERS Safety Report 5096977-4 (Version None)
Quarter: 2006Q3

REPORT INFORMATION
  Report Type: 
  Country: None (occurrence: None)
  Receive Date: 20060831
  Receipt Date: 20060831
  Transmission Date: 20061208
  Serious: Yes (Hospitalization)
  Sender: FDA-Public Use
  Company Number: None

PATIENT
  Age: 73 Year
  Sex: Male
  Weight: 110.6777 kg

DRUGS (3)
  1. FUROSEMIDE [Suspect]
     Indication: OEDEMA
     Dosage: 20 MG   DAILY   PO
     Route: 048
  2. FUROSEMIDE [Suspect]
     Indication: WOUND
     Dosage: 20 MG   DAILY   PO
     Route: 048
  3. MOXIFLOXACIN HCL [Suspect]
     Indication: VENOUS STASIS
     Dosage: 400 MG   DAILY   PO
     Route: 048
     Dates: start: 20060726, end: 20060807

REACTIONS (4)
  - ANGIONEUROTIC OEDEMA [None]
  - CELLULITIS [None]
  - DRUG ERUPTION [None]
  - LIMB INJURY [None]
